FAERS Safety Report 13818884 (Version 2)
Quarter: 2018Q1

REPORT INFORMATION
  Report Type: Report from Study
  Country: US (occurrence: US)
  Receive Date: 20170731
  Receipt Date: 20180201
  Transmission Date: 20180508
  Serious: No
  Sender: FDA-Public Use
  Company Number: US-EXELIXIS-CABO-16007866

PATIENT
  Sex: Male

DRUGS (15)
  1. CABOMETYX [Suspect]
     Active Substance: CABOZANTINIB S-MALATE
     Dosage: 20 MG, QD
     Route: 048
  2. ATORVASTATIN [Concomitant]
     Active Substance: ATORVASTATIN
  3. KLOR-CON [Concomitant]
     Active Substance: POTASSIUM CHLORIDE
  4. SYNTHROID [Concomitant]
     Active Substance: LEVOTHYROXINE SODIUM
  5. BISOPROLOL [Concomitant]
     Active Substance: BISOPROLOL
  6. TAMSULOSIN [Concomitant]
     Active Substance: TAMSULOSIN
  7. FLUTICASONE. [Concomitant]
     Active Substance: FLUTICASONE
  8. ISOSORB [Concomitant]
  9. CABOMETYX [Suspect]
     Active Substance: CABOZANTINIB S-MALATE
     Indication: RENAL CANCER
     Dosage: 40 MG, QD
     Route: 048
     Dates: start: 20161203
  10. CALCIUM-CARBONAT [Concomitant]
  11. PANTOPRAZOLE [Concomitant]
     Active Substance: PANTOPRAZOLE
  12. ALBUTEROL. [Concomitant]
     Active Substance: ALBUTEROL
  13. ASPIRIN. [Concomitant]
     Active Substance: ASPIRIN
  14. IRON [Concomitant]
     Active Substance: IRON
  15. OXYCODON [Concomitant]
     Active Substance: OXYCODONE

REACTIONS (3)
  - Pain [Unknown]
  - Pruritus [Unknown]
  - Rash [Unknown]
